FAERS Safety Report 18338392 (Version 1)
Quarter: 2020Q4

REPORT INFORMATION
  Report Type: Spontaneous
  Country: CN (occurrence: CN)
  Receive Date: 20201002
  Receipt Date: 20201002
  Transmission Date: 20210113
  Serious: Yes (Life-Threatening)
  Sender: FDA-Public Use
  Company Number: CN-ELI_LILLY_AND_COMPANY-CN202009013109

PATIENT
  Age: 62 Year
  Sex: Female

DRUGS (3)
  1. HUMULIN 70/30 [Suspect]
     Active Substance: INSULIN HUMAN
     Indication: HYPERTENSION
  2. HUMULIN 70/30 [Suspect]
     Active Substance: INSULIN HUMAN
     Indication: TYPE 2 DIABETES MELLITUS
  3. HUMULIN 70/30 [Suspect]
     Active Substance: INSULIN HUMAN
     Indication: CORONARY ARTERY DISEASE
     Dosage: 15 INTERNATIONAL UNIT, BID
     Route: 058
     Dates: start: 20200828, end: 20200903

REACTIONS (2)
  - Off label use [Recovered/Resolved]
  - Shock hypoglycaemic [Recovering/Resolving]

NARRATIVE: CASE EVENT DATE: 20200828
